FAERS Safety Report 6294439-X (Version None)
Quarter: 2009Q3

REPORT INFORMATION
  Report Type: 
  Country: None (occurrence: None)
  Receive Date: 20090803
  Receipt Date: 20090723
  Transmission Date: 20100115
  Serious: Yes (Hospitalization, Other)
  Sender: FDA-Public Use
  Company Number: US-ALEXION-A200900581

PATIENT
  Sex: Male

DRUGS (16)
  1. SOLIRIS [Suspect]
     Indication: PAROXYSMAL NOCTURNAL HAEMOGLOBINURIA
     Dosage: 600 MG, QW
     Route: 042
     Dates: start: 20080128, end: 20080218
  2. SOLIRIS [Suspect]
     Dosage: 900 MG, Q2W
     Route: 042
     Dates: start: 20080225, end: 20080728
  3. SOLIRIS [Suspect]
     Dosage: 900 MG, Q2W
     Route: 042
     Dates: start: 20080918
  4. SOLIRIS [Suspect]
     Dosage: 900 MG, QW
     Route: 042
  5. DACOGEN [Concomitant]
     Indication: MYELODYSPLASTIC SYNDROME
     Dosage: UNK
     Dates: start: 20090427
  6. AMPICILLIN [Concomitant]
  7. HYDREA [Concomitant]
     Dosage: UNK
     Route: 048
  8. AMOXICILLIN [Concomitant]
  9. TOPROL-XL [Concomitant]
     Dosage: UNK
     Route: 048
  10. NEXIUM [Concomitant]
     Dosage: UNK
     Route: 048
  11. LASIX [Concomitant]
     Dosage: UNK
     Route: 048
  12. FOLIC ACID [Concomitant]
     Dosage: UNK
     Route: 048
  13. ALLOPURINOL [Concomitant]
     Dosage: UNK
     Route: 048
  14. AMBIEN [Concomitant]
     Dosage: UNK
     Route: 048
  15. ARIXTRA [Concomitant]
     Dosage: UNK
     Route: 048
  16. EXJADE [Concomitant]

REACTIONS (7)
  - CHEST INJURY [None]
  - DYSPNOEA [None]
  - FALL [None]
  - FATIGUE [None]
  - PLATELET COUNT INCREASED [None]
  - PLEURAL EFFUSION [None]
  - RASH [None]
